FAERS Safety Report 17721236 (Version 1)
Quarter: 2020Q2

REPORT INFORMATION
  Report Type: Spontaneous
  Country: US (occurrence: US)
  Receive Date: 20200429
  Receipt Date: 20200429
  Transmission Date: 20200714
  Serious: No
  Sender: FDA-Public Use
  Company Number: US-GLENMARK PHARMACEUTICALS-2019GMK044411

PATIENT

DRUGS (1)
  1. TELMISARTAN TABLETS [Suspect]
     Active Substance: TELMISARTAN
     Indication: HYPERTENSION
     Dosage: 80 MG, AM (ONCE A DAY IN THE MORNING) (STARTED SINCE MAR OR APR-2019)
     Route: 065
     Dates: start: 2019

REACTIONS (6)
  - Product administration error [Unknown]
  - Product storage error [Unknown]
  - Product packaging difficult to open [Unknown]
  - No adverse event [Unknown]
  - Medication error [Unknown]
  - Product blister packaging issue [Unknown]

NARRATIVE: CASE EVENT DATE: 2019
